FAERS Safety Report 7611881-2 (Version None)
Quarter: 2011Q3

REPORT INFORMATION
  Report Type: 
  Country: None (occurrence: None)
  Receive Date: 20110715
  Receipt Date: 20110707
  Transmission Date: 20111222
  Serious: Yes (Hospitalization)
  Sender: FDA-Public Use
  Company Number: ES-BRISTOL-MYERS SQUIBB COMPANY-15902323

PATIENT
  Age: 54 Year
  Sex: Male

DRUGS (4)
  1. AMLODIPINE [Concomitant]
  2. METFORMIN HCL [Suspect]
  3. VALSARTAN [Concomitant]
  4. LANTUS [Concomitant]

REACTIONS (2)
  - LACTIC ACIDOSIS [None]
  - VISUAL IMPAIRMENT [None]
